FAERS Safety Report 11333140 (Version 1)
Quarter: 2015Q3

REPORT INFORMATION
  Report Type: Spontaneous
  Country: US (occurrence: US)
  Receive Date: 20150803
  Receipt Date: 20150803
  Transmission Date: 20151125
  Serious: No
  Sender: FDA-Public Use
  Company Number: US-ELI_LILLY_AND_COMPANY-US200606003547

PATIENT
  Sex: Male

DRUGS (16)
  1. ZYPREXA [Suspect]
     Active Substance: OLANZAPINE
     Dosage: 20 MG, UNK
     Dates: start: 20030808
  2. ZYPREXA ZYDIS [Suspect]
     Active Substance: OLANZAPINE
     Dosage: 20 MG, 2/D
     Route: 048
  3. HALDOL [Concomitant]
     Active Substance: HALOPERIDOL
  4. ZYPREXA [Suspect]
     Active Substance: OLANZAPINE
     Indication: BACK DISORDER
     Dosage: 10 MG, UNKNOWN
     Dates: start: 1997, end: 20030808
  5. LIPITOR [Concomitant]
     Active Substance: ATORVASTATIN CALCIUM
     Dosage: 10 MG, UNK
     Dates: end: 2000
  6. RISPERDAL /SWE/ [Concomitant]
     Dosage: 4 MG, 2/D
  7. ABILIFY [Concomitant]
     Active Substance: ARIPIPRAZOLE
     Dosage: 15 MG, UNK
     Dates: end: 2005
  8. DEPAKOTE [Concomitant]
     Active Substance: DIVALPROEX SODIUM
     Dosage: 750 MG, 2/D
  9. LITHIUM CARBONATE. [Concomitant]
     Active Substance: LITHIUM CARBONATE
     Dosage: 300 MG, UNK
  10. BENZTROPINE MESYLATE. [Concomitant]
     Active Substance: BENZTROPINE MESYLATE
     Dosage: 1 MG, UNK
     Dates: end: 1997
  11. ASPIRIN. [Concomitant]
     Active Substance: ASPIRIN
  12. LORAZEPAM. [Concomitant]
     Active Substance: LORAZEPAM
     Dosage: 1 MG, UNKNOWN
  13. TYLENOL /USA/ [Concomitant]
  14. NORVASC [Concomitant]
     Active Substance: AMLODIPINE BESYLATE
     Dosage: 5 MG, UNK
  15. COGENTIN                                /UNK/ [Concomitant]
     Dosage: 1 MG, 2/D
  16. ATIVAN [Concomitant]
     Active Substance: LORAZEPAM
     Dosage: 1 MG, 3/D

REACTIONS (5)
  - Diabetes mellitus [Unknown]
  - Prescribed overdose [Not Recovered/Not Resolved]
  - Vomiting [Unknown]
  - Dysarthria [Recovering/Resolving]
  - Skin discolouration [Recovering/Resolving]

NARRATIVE: CASE EVENT DATE: 2005
